FAERS Safety Report 19804848 (Version 1)
Quarter: 2021Q3

REPORT INFORMATION
  Report Type: Spontaneous
  Country: US (occurrence: US)
  Receive Date: 20210908
  Receipt Date: 20210908
  Transmission Date: 20211014
  Serious: No
  Sender: FDA-Public Use
  Company Number: US-ASTRAZENECA-2021A683144

PATIENT
  Age: 27258 Day
  Sex: Female
  Weight: 78 kg

DRUGS (6)
  1. FASENRA [Suspect]
     Active Substance: BENRALIZUMAB
     Indication: EOSINOPHIL COUNT INCREASED
     Route: 058
     Dates: start: 20210419
  2. METAMUCIL [Concomitant]
     Active Substance: PLANTAGO SEED
     Dates: start: 20210422
  3. STIOLTO RESPIMAT [Concomitant]
     Active Substance: OLODATEROL HYDROCHLORIDE\TIOTROPIUM BROMIDE MONOHYDRATE
     Dosage: 2 PUFFS ONCE A DAY
  4. QVAR [Concomitant]
     Active Substance: BECLOMETHASONE DIPROPIONATE
     Dosage: 1 PUFF TWICE A DAY
  5. PREDNISONE IV [Concomitant]
     Active Substance: PREDNISONE
  6. EPIPEN [Concomitant]
     Active Substance: EPINEPHRINE

REACTIONS (8)
  - Swollen tongue [Recovered/Resolved]
  - Gait disturbance [Unknown]
  - Dyspnoea [Not Recovered/Not Resolved]
  - Dysphonia [Unknown]
  - Joint swelling [Unknown]
  - Memory impairment [Unknown]
  - Condition aggravated [Unknown]
  - Aphonia [Unknown]

NARRATIVE: CASE EVENT DATE: 20210423
